FAERS Safety Report 4559408-6 (Version None)
Quarter: 2005Q1

REPORT INFORMATION
  Report Type: 
  Country: None (occurrence: None)
  Receive Date: 20050121
  Receipt Date: 20050121
  Transmission Date: 20050727
  Serious: Yes (Hospitalization)
  Sender: FDA-Public Use
  Company Number: None

PATIENT
  Age: 60 Year
  Sex: Male
  Weight: 58 kg

DRUGS (9)
  1. METOPROLOL [Suspect]
     Dosage: 200 PO QD
     Route: 048
  2. AMIODARONE HCL [Suspect]
     Indication: ATRIAL FIBRILLATION
     Dosage: 50MG Q 12 H
  3. FELODIPINE [Concomitant]
  4. WARFARIN SODIUM [Concomitant]
  5. SEVELAMER [Concomitant]
  6. CA-GLUCONATE [Concomitant]
  7. OMEPRAZOLE [Concomitant]
  8. METHYLDOPA [Concomitant]
  9. SERTRALINE HCL [Concomitant]

REACTIONS (3)
  - BRADYCARDIA [None]
  - HYPERKALAEMIA [None]
  - HYPOTENSION [None]
